FAERS Safety Report 9772413 (Version 1)
Quarter: 2013Q4

REPORT INFORMATION
  Report Type: Spontaneous
  Country: US (occurrence: US)
  Receive Date: 20131219
  Receipt Date: 20131219
  Transmission Date: 20140711
  Serious: Yes (Other)
  Sender: FDA-Public Use
  Company Number: US-ABBVIE-13P-163-1179330-00

PATIENT
  Sex: 0

DRUGS (2)
  1. NIACIN ER/SIMVASTATIN [Suspect]
     Indication: BLOOD CHOLESTEROL
  2. STATIN THERAPY [Concomitant]
     Indication: BLOOD CHOLESTEROL

REACTIONS (1)
  - Cerebrovascular accident [Unknown]
